FAERS Safety Report 7020632-4 (Version None)
Quarter: 2010Q3

REPORT INFORMATION
  Report Type: 
  Country: None (occurrence: None)
  Receive Date: 20100929
  Receipt Date: 20100927
  Transmission Date: 20110219
  Serious: Yes (Life-Threatening, Hospitalization)
  Sender: FDA-Public Use
  Company Number: B0674325A

PATIENT
  Sex: Female
  Weight: 70 kg

DRUGS (1)
  1. FLIXOTIDE [Suspect]
     Indication: ASTHMA
     Route: 055

REACTIONS (4)
  - DYSPNOEA [None]
  - MALAISE [None]
  - PLEURISY [None]
  - PNEUMONIA [None]
